FAERS Safety Report 5231985-1 (Version None)
Quarter: 2007Q1

REPORT INFORMATION
  Report Type: 
  Country: None (occurrence: None)
  Receive Date: 20070206
  Receipt Date: 20070126
  Transmission Date: 20070707
  Serious: Yes (Hospitalization, Disabling, Other)
  Sender: FDA-Public Use
  Company Number: US-PFIZER INC-2007007648

PATIENT
  Sex: Male
  Weight: 113.4 kg

DRUGS (2)
  1. CELEBREX [Suspect]
  2. BEXTRA [Suspect]
     Indication: ARTHRITIS

REACTIONS (6)
  - BIPOLAR DISORDER [None]
  - BIPOLAR I DISORDER [None]
  - CEREBROVASCULAR ACCIDENT [None]
  - HYPERTENSION [None]
  - PULMONARY ARTERIAL PRESSURE [None]
  - PULMONARY EMBOLISM [None]
